FAERS Safety Report 9159993 (Version 1)
Quarter: 2013Q1

REPORT INFORMATION
  Report Type: Spontaneous
  Country: US (occurrence: US)
  Receive Date: 20130313
  Receipt Date: 20130313
  Transmission Date: 20140127
  Serious: Yes (Other)
  Sender: FDA-Public Use
  Company Number: US-PFIZER INC-2013082116

PATIENT
  Age: 53 Year
  Sex: Female
  Weight: 67.1 kg

DRUGS (5)
  1. DEPO-ESTRADIOL [Suspect]
     Indication: HORMONE LEVEL ABNORMAL
     Dosage: 5 MG/ML, UNK
     Dates: start: 1992
  2. MELOXICAM [Concomitant]
     Indication: ARTHRITIS
     Dosage: 50 MG, 1X/DAY
  3. TRAMADOL [Concomitant]
     Indication: ARTHRITIS
     Dosage: 50 MG, UNK
  4. IBUPROFEN [Concomitant]
     Indication: ARTHRITIS
     Dosage: 800 MG, AS NEEDED
  5. VICODIN [Concomitant]
     Indication: ARTHRITIS
     Dosage: UNK

REACTIONS (1)
  - Neoplasm malignant [Unknown]
